FAERS Safety Report 8954517 (Version 1)
Quarter: 2012Q4

REPORT INFORMATION
  Report Type: Spontaneous
  Country: US (occurrence: None)
  Receive Date: 20121108
  Receipt Date: 20121108
  Transmission Date: 20130627
  Serious: Yes (Other)
  Sender: FDA-Public Use
  Company Number: None

PATIENT
  Age: 14 Year
  Sex: Male
  Weight: 65.77 kg

DRUGS (1)
  1. MONTELUKAST 10MG MYLAN [Suspect]
     Dosage: 10mg qd po
     Route: 048
     Dates: start: 20120926, end: 20121002

REACTIONS (1)
  - Vomiting [None]
